FAERS Safety Report 4502634-2 (Version None)
Quarter: 2004Q4

REPORT INFORMATION
  Report Type: 
  Country: None (occurrence: None)
  Receive Date: 20041110
  Receipt Date: 20041027
  Transmission Date: 20050328
  Serious: Yes (Hospitalization)
  Sender: FDA-Public Use
  Company Number: D01200301910

PATIENT
  Age: 68 Year
  Sex: Male

DRUGS (4)
  1. ALFUZOSIN [Suspect]
     Indication: URINARY RETENTION
     Dosage: 10 MG OD
     Route: 048
     Dates: start: 20031128, end: 20031208
  2. CORINFAR    (NEFEDIPINE) [Concomitant]
  3. VASOPREN       (ENALAPRIL) [Concomitant]
  4. CHLOFAZOLIN    (CLONIDINE HYDROCHLORIDE) [Concomitant]

REACTIONS (13)
  - ASTHENIA [None]
  - CHEST PAIN [None]
  - CIRCULATORY COLLAPSE [None]
  - DISORIENTATION [None]
  - DIZZINESS [None]
  - DYSPNOEA [None]
  - FALL [None]
  - HAEMOPTYSIS [None]
  - HYPOTONIA [None]
  - MALAISE [None]
  - PULMONARY EMBOLISM [None]
  - TACHYCARDIA [None]
  - VERTIGO [None]
